FAERS Safety Report 6246428-9 (Version None)
Quarter: 2009Q2

REPORT INFORMATION
  Report Type: 
  Country: None (occurrence: None)
  Receive Date: 20090624
  Receipt Date: 20090624
  Transmission Date: 20091009
  Serious: Yes (Other)
  Sender: FDA-Public Use
  Company Number: None

PATIENT
  Age: 10 Year
  Sex: Female

DRUGS (1)
  1. BENEFIBER W/ WHEAT DEXTRIN (NCH) (WHEAT DEXTRIN) UNKNOWN [Suspect]
     Indication: BLOOD CHOLESTEROL INCREASED
     Dosage: 1 SOUP SPOON DAILY

REACTIONS (5)
  - BLOOD CHOLESTEROL INCREASED [None]
  - CRYING [None]
  - DEPRESSED MOOD [None]
  - NERVOUSNESS [None]
  - WEIGHT DECREASED [None]
